FAERS Safety Report 6903789-2 (Version None)
Quarter: 2010Q3

REPORT INFORMATION
  Report Type: 
  Country: None (occurrence: None)
  Receive Date: 20100804
  Receipt Date: 20081218
  Transmission Date: 20110219
  Serious: No
  Sender: FDA-Public Use
  Company Number: US-PFIZER INC-2008158246

PATIENT
  Sex: Female

DRUGS (9)
  1. LYRICA [Suspect]
     Indication: HERPES ZOSTER
     Dosage: 75 MG, 2X/DAY
     Dates: start: 20081106
  2. TOPROL-XL [Concomitant]
     Dosage: UNK
  3. PROPOXYPHENE HCL [Concomitant]
     Dosage: UNK
  4. FUROSEMIDE [Concomitant]
     Dosage: 40 MG, 1X/DAY
  5. DIGOXIN [Concomitant]
     Dosage: 125 MG, 1X/DAY
  6. AMLODIPINE [Concomitant]
     Dosage: 5 MG, 1X/DAY
  7. SIMVASTATIN [Concomitant]
     Dosage: UNK
  8. NITROGLYCERIN [Concomitant]
     Dosage: UNK
     Route: 061
  9. WARFARIN SODIUM [Concomitant]
     Dosage: UNK

REACTIONS (3)
  - DRUG INEFFECTIVE [None]
  - MYALGIA [None]
  - PARAESTHESIA [None]
